FAERS Safety Report 4745058-5 (Version None)
Quarter: 2005Q3

REPORT INFORMATION
  Report Type: 
  Country: None (occurrence: None)
  Receive Date: 20050812
  Receipt Date: 20050812
  Transmission Date: 20060218
  Serious: Yes (Hospitalization)
  Sender: FDA-Public Use
  Company Number: None

PATIENT
  Age: 52 Year
  Sex: Female

DRUGS (5)
  1. AVASTIN [Suspect]
     Indication: COLON CANCER METASTATIC
     Dates: start: 20050621
  2. AVASTIN [Suspect]
     Indication: COLON CANCER METASTATIC
     Dates: start: 20050705
  3. AVASTIN [Suspect]
     Indication: COLON CANCER METASTATIC
     Dates: start: 20050719
  4. AVASTIN [Suspect]
     Indication: COLON CANCER METASTATIC
     Dates: start: 20050802
  5. MORPHINE [Concomitant]

REACTIONS (6)
  - ABASIA [None]
  - ABDOMINAL PAIN [None]
  - ABDOMINAL TENDERNESS [None]
  - DIARRHOEA [None]
  - NAUSEA [None]
  - VOMITING [None]
